FAERS Safety Report 13298296 (Version 2)
Quarter: 2017Q1

REPORT INFORMATION
  Report Type: Spontaneous
  Country: IT (occurrence: IT)
  Receive Date: 20170306
  Receipt Date: 20170308
  Transmission Date: 20170428
  Serious: Yes (Other)
  Sender: FDA-Public Use
  Company Number: IT-TEVA-744635ACC

PATIENT
  Age: 59 Year
  Sex: Male
  Weight: 60 kg

DRUGS (5)
  1. HALDOL DECANOAS - 50 MG/ML SOLUZIONE INIETTABILE [Suspect]
     Active Substance: HALOPERIDOL DECANOATE
     Indication: PRODUCT USED FOR UNKNOWN INDICATION
  2. TOLEP - 300 MG COMPRESSE - NOVARTIS FARMA S.P.A. [Suspect]
     Active Substance: OXCARBAZEPINE
     Indication: PRODUCT USED FOR UNKNOWN INDICATION
  3. CLOPIXOL - 20 MG/ML GOCCE ORALI, SOLUZIONE - LUNDBECK ITALIA S.P.A. [Suspect]
     Active Substance: ZUCLOPENTHIXOL
     Indication: PRODUCT USED FOR UNKNOWN INDICATION
  4. ROCEFIN - ROCHE S.P.A. [Suspect]
     Active Substance: CEFTRIAXONE SODIUM
     Indication: PRODUCT USED FOR UNKNOWN INDICATION
  5. LORAZEPAM. [Suspect]
     Active Substance: LORAZEPAM
     Indication: PRODUCT USED FOR UNKNOWN INDICATION

REACTIONS (3)
  - Coma [Unknown]
  - Hyperthermia [Unknown]
  - Rhabdomyolysis [Unknown]

NARRATIVE: CASE EVENT DATE: 20170130
